FAERS Safety Report 8345927-3 (Version None)
Quarter: 2012Q2

REPORT INFORMATION
  Report Type: 
  Country: None (occurrence: None)
  Receive Date: 20120507
  Receipt Date: 20120423
  Transmission Date: 20120825
  Serious: Yes (Hospitalization, Other)
  Sender: FDA-Public Use
  Company Number: 2012P1019265

PATIENT
  Age: 8 Year
  Sex: Male

DRUGS (3)
  1. PULMOZYME [Concomitant]
  2. CEFTAZIDIME [Suspect]
     Indication: BRONCHOPNEUMONIA
     Dosage: 1250 MG; IV
     Route: 042
     Dates: start: 20120312, end: 20120312
  3. CREON [Concomitant]

REACTIONS (4)
  - SWELLING FACE [None]
  - RASH GENERALISED [None]
  - HYPERAEMIA [None]
  - ORAL PRURITUS [None]
